FAERS Safety Report 16223815 (Version 2)
Quarter: 2019Q2

REPORT INFORMATION
  Report Type: Spontaneous
  Country: AR (occurrence: AR)
  Receive Date: 20190422
  Receipt Date: 20190520
  Transmission Date: 20190711
  Serious: Yes (Other)
  Sender: FDA-Public Use
  Company Number: AR-PFIZER INC-2019166974

PATIENT
  Age: 68 Year
  Sex: Female

DRUGS (1)
  1. SUTENT [Suspect]
     Active Substance: SUNITINIB MALATE
     Indication: METASTATIC RENAL CELL CARCINOMA
     Dosage: 50 MG, CYCLIC (DAILY, SCHEME 4/2 REST)
     Dates: start: 20190318

REACTIONS (10)
  - Asthenia [Recovering/Resolving]
  - Hypertension [Unknown]
  - Vomiting [Recovering/Resolving]
  - Diabetes mellitus inadequate control [Recovering/Resolving]
  - Hepatic failure [Unknown]
  - Yellow skin [Recovering/Resolving]
  - Nausea [Recovering/Resolving]
  - Neoplasm progression [Unknown]
  - Gait disturbance [Unknown]
  - Blood pressure fluctuation [Unknown]

NARRATIVE: CASE EVENT DATE: 2019
